FAERS Safety Report 16996290 (Version 2)
Quarter: 2019Q4

REPORT INFORMATION
  Report Type: Spontaneous
  Country: CA (occurrence: CA)
  Receive Date: 20191105
  Receipt Date: 20191203
  Transmission Date: 20200122
  Serious: Yes (Other)
  Sender: FDA-Public Use
  Company Number: CA-PFIZER INC-2019476158

PATIENT
  Sex: Female

DRUGS (31)
  1. HUMIRA [Suspect]
     Active Substance: ADALIMUMAB
     Indication: RHEUMATOID ARTHRITIS
     Dosage: 40 MG, 1 EVERY 2 WEEKS
     Route: 058
  2. DILAUDID [Concomitant]
     Active Substance: HYDROMORPHONE HYDROCHLORIDE
     Route: 065
  3. TYLENOL [Concomitant]
     Active Substance: ACETAMINOPHEN
     Route: 065
  4. ARAVA [Suspect]
     Active Substance: LEFLUNOMIDE
     Dosage: 20 MG, 1X/DAY
     Route: 065
  5. REMICADE [Suspect]
     Active Substance: INFLIXIMAB
     Route: 065
  6. ASPIRIN [ACETYLSALICYLIC ACID] [Concomitant]
     Active Substance: ASPIRIN
     Route: 065
  7. SULFASALAZINE. [Suspect]
     Active Substance: SULFASALAZINE
     Indication: RHEUMATOID ARTHRITIS
     Route: 065
  8. AZATHIOPRINE. [Suspect]
     Active Substance: AZATHIOPRINE
     Route: 065
  9. PREDNISONE. [Suspect]
     Active Substance: PREDNISONE
     Route: 065
  10. LIDOCAINE. [Concomitant]
     Active Substance: LIDOCAINE
     Route: 061
  11. NITROGLYCERIN. [Concomitant]
     Active Substance: NITROGLYCERIN
     Route: 065
  12. PLAQUENIL [Suspect]
     Active Substance: HYDROXYCHLOROQUINE SULFATE
     Route: 048
  13. KENALOG [Concomitant]
     Active Substance: TRIAMCINOLONE ACETONIDE
     Route: 065
  14. PANTOLOC [PANTOPRAZOLE] [Concomitant]
     Active Substance: PANTOPRAZOLE SODIUM
     Route: 065
  15. PREGABALIN. [Concomitant]
     Active Substance: PREGABALIN
     Route: 065
  16. ROSUVASTATIN CALCIUM. [Concomitant]
     Active Substance: ROSUVASTATIN CALCIUM
     Route: 065
  17. XELJANZ [Concomitant]
     Active Substance: TOFACITINIB CITRATE
     Route: 065
  18. INFLIXIMAB [Suspect]
     Active Substance: INFLIXIMAB
     Route: 065
  19. HUMIRA [Suspect]
     Active Substance: ADALIMUMAB
     Dosage: UNK
  20. ACIDOPHILUS [Concomitant]
     Active Substance: LACTOBACILLUS ACIDOPHILUS
     Route: 065
  21. ERGOCALCIFEROL. [Concomitant]
     Active Substance: ERGOCALCIFEROL
     Route: 065
  22. HYDROMORPHONE HYDROCHLORIDE. [Concomitant]
     Active Substance: HYDROMORPHONE HYDROCHLORIDE
     Route: 065
  23. JANUVIA [Concomitant]
     Active Substance: SITAGLIPTIN PHOSPHATE
     Route: 065
  24. METRONIDAZOLE. [Concomitant]
     Active Substance: METRONIDAZOLE
     Dosage: UNK
     Route: 065
  25. RISEDRONATE [Concomitant]
     Active Substance: RISEDRONATE SODIUM
     Route: 065
  26. SALBUTAMOL [Concomitant]
     Active Substance: ALBUTEROL
     Route: 065
  27. TRIAMCINOLONE [Concomitant]
     Active Substance: TRIAMCINOLONE
     Route: 065
  28. METHOTREXATE SODIUM. [Suspect]
     Active Substance: METHOTREXATE SODIUM
     Indication: RHEUMATOID ARTHRITIS
     Dosage: 1 EVERY 2 WEEKS
     Route: 065
  29. ENBREL [Suspect]
     Active Substance: ETANERCEPT
     Route: 065
  30. CALCIUM [Concomitant]
     Active Substance: CALCIUM
     Route: 065
  31. DEFLAZACORT [Concomitant]
     Active Substance: DEFLAZACORT
     Route: 065

REACTIONS (24)
  - Osteoporosis [Not Recovered/Not Resolved]
  - Skin ulcer [Not Recovered/Not Resolved]
  - Bronchiectasis [Not Recovered/Not Resolved]
  - Bone disorder [Not Recovered/Not Resolved]
  - Localised infection [Not Recovered/Not Resolved]
  - Synovitis [Not Recovered/Not Resolved]
  - Erythema [Not Recovered/Not Resolved]
  - Gastrointestinal disorder [Not Recovered/Not Resolved]
  - Infection [Not Recovered/Not Resolved]
  - Joint range of motion decreased [Not Recovered/Not Resolved]
  - Pneumonia [Not Recovered/Not Resolved]
  - Rheumatoid arthritis [Not Recovered/Not Resolved]
  - Bursitis [Not Recovered/Not Resolved]
  - Crying [Not Recovered/Not Resolved]
  - Photosensitivity reaction [Not Recovered/Not Resolved]
  - Staphylococcal infection [Not Recovered/Not Resolved]
  - Tenosynovitis [Not Recovered/Not Resolved]
  - Therapeutic product effect incomplete [Not Recovered/Not Resolved]
  - Peripheral vascular disorder [Not Recovered/Not Resolved]
  - Skin discolouration [Not Recovered/Not Resolved]
  - Swelling [Not Recovered/Not Resolved]
  - Bursitis infective [Not Recovered/Not Resolved]
  - Renal failure [Not Recovered/Not Resolved]
  - Respiratory tract infection [Not Recovered/Not Resolved]
